FAERS Safety Report 20578547 (Version 1)
Quarter: 2022Q1

REPORT INFORMATION
  Report Type: Spontaneous
  Country: US (occurrence: None)
  Receive Date: 20220310
  Receipt Date: 20220310
  Transmission Date: 20220423
  Serious: Yes (Life-Threatening, Other)
  Sender: FDA-Public Use
  Company Number: None

PATIENT
  Age: 41 Year
  Sex: Female
  Weight: 76 kg

DRUGS (2)
  1. BICTEGRAVIR SODIUM\EMTRICITABINE\TENOFOVIR ALAFENAMIDE FUMARATE [Suspect]
     Active Substance: BICTEGRAVIR SODIUM\EMTRICITABINE\TENOFOVIR ALAFENAMIDE FUMARATE
     Indication: HIV infection
     Dosage: OTHER QUANTITY : 1 UNITS;?FREQUENCY : DAILY;?
     Route: 048
     Dates: start: 20211027, end: 20211028
  2. SULFAMETHOXAZOLE\TRIMETHOPRIM [Suspect]
     Active Substance: SULFAMETHOXAZOLE\TRIMETHOPRIM
     Dosage: OTHER QUANTITY : 1 UNITS;?FREQUENCY : TWICE A DAY;?
     Route: 048
     Dates: start: 20210903, end: 20210914

REACTIONS (5)
  - Lip swelling [None]
  - Pharyngeal swelling [None]
  - Rash macular [None]
  - Skin hyperpigmentation [None]
  - Urticaria [None]

NARRATIVE: CASE EVENT DATE: 20210913
